FAERS Safety Report 17094754 (Version 2)
Quarter: 2020Q1

REPORT INFORMATION
  Report Type: Report from Study
  Country: None (occurrence: US)
  Receive Date: 20191130
  Receipt Date: 20200303
  Transmission Date: 20200409
  Serious: Yes (Hospitalization, Other)
  Sender: FDA-Public Use
  Company Number: US-ABBVIE-19K-163-3171589-00

PATIENT
  Age: 59 Year
  Sex: Female

DRUGS (2)
  1. HUMIRA [Suspect]
     Active Substance: ADALIMUMAB
     Dosage: CITRATE FREE
     Route: 058
  2. HUMIRA [Suspect]
     Active Substance: ADALIMUMAB
     Indication: RHEUMATOID ARTHRITIS
     Dosage: CITRATE FREE
     Route: 058

REACTIONS (10)
  - Musculoskeletal stiffness [Unknown]
  - Nerve compression [Unknown]
  - Tendonitis [Not Recovered/Not Resolved]
  - Pain in extremity [Unknown]
  - Mycobacterium tuberculosis complex test positive [Unknown]
  - Depression [Unknown]
  - Urinary tract infection [Unknown]
  - Spinal operation [Recovering/Resolving]
  - Drug ineffective [Recovering/Resolving]
  - Discomfort [Unknown]

NARRATIVE: CASE EVENT DATE: 20180826
